FAERS Safety Report 5389923-7 (Version None)
Quarter: 2007Q3

REPORT INFORMATION
  Report Type: 
  Country: None (occurrence: None)
  Receive Date: 20070716
  Receipt Date: 20070716
  Transmission Date: 20080115
  Serious: Yes (Hospitalization)
  Sender: FDA-Public Use
  Company Number: None

PATIENT
  Age: 35 Year
  Sex: Female

DRUGS (6)
  1. PREDNISONE [Suspect]
     Dosage: 10 MG DAILY PO
     Route: 048
  2. OXYCODONE HCL [Concomitant]
  3. PLAQUENIL [Concomitant]
  4. IMURAN [Concomitant]
  5. ELAVIL [Concomitant]
  6. RANITIDINE [Concomitant]

REACTIONS (3)
  - OSTEONECROSIS [None]
  - PROCEDURAL PAIN [None]
  - SPINAL CORD COMPRESSION [None]
